FAERS Safety Report 13934219 (Version 1)
Quarter: 2017Q3

REPORT INFORMATION
  Report Type: Spontaneous
  Country: US (occurrence: US)
  Receive Date: 20170905
  Receipt Date: 20170905
  Transmission Date: 20171127
  Serious: No
  Sender: FDA-Public Use
  Company Number: US-CIPLA LTD.-2016US10350

PATIENT

DRUGS (2)
  1. MELOXICAM. [Suspect]
     Active Substance: MELOXICAM
     Indication: SWELLING
  2. MELOXICAM. [Suspect]
     Active Substance: MELOXICAM
     Indication: LIMB INJURY
     Dosage: 7.5 MG, BID (TOTAL 5 TABLETS)
     Route: 048
     Dates: start: 20160717, end: 20160719

REACTIONS (1)
  - Stomatitis [Recovered/Resolved]

NARRATIVE: CASE EVENT DATE: 20160717
